FAERS Safety Report 9813532 (Version 1)
Quarter: 2014Q1

REPORT INFORMATION
  Report Type: Spontaneous
  Country: US (occurrence: None)
  Receive Date: 20140109
  Receipt Date: 20140109
  Transmission Date: 20141002
  Serious: Yes (Life-Threatening)
  Sender: FDA-Public Use
  Company Number: None

PATIENT
  Age: 83 Year
  Sex: Male
  Weight: 60 kg

DRUGS (1)
  1. LIDOCAINE [Suspect]
     Indication: BIOPSY KIDNEY
     Route: 058
     Dates: start: 20131023, end: 20131023

REACTIONS (2)
  - Anaphylactic reaction [None]
  - Palpitations [None]
